FAERS Safety Report 4733396-1 (Version None)
Quarter: 2005Q3

REPORT INFORMATION
  Report Type: 
  Country: None (occurrence: None)
  Receive Date: 20050803
  Receipt Date: 20050727
  Transmission Date: 20060218
  Serious: Yes (Hospitalization)
  Sender: FDA-Public Use
  Company Number: PHRM2005FR02190

PATIENT
  Age: 42 Year
  Sex: Female

DRUGS (3)
  1. SANDIMMUNE [Suspect]
     Indication: LUNG TRANSPLANT
     Dosage: 100 MG DAILY
     Route: 042
     Dates: start: 20041102
  2. CELLCEPT [Suspect]
     Indication: LUNG TRANSPLANT
     Dosage: 250 MG, TID
     Route: 048
     Dates: start: 20030811, end: 20050531
  3. BACTRIM [Suspect]
     Indication: ASPERGILLOSIS
     Route: 048
     Dates: start: 20041103, end: 20050531

REACTIONS (12)
  - ABDOMINAL PAIN [None]
  - BLOOD CREATININE INCREASED [None]
  - BLOOD UREA INCREASED [None]
  - COLECTOMY [None]
  - HYPERKALAEMIA [None]
  - LAPAROTOMY [None]
  - LARGE INTESTINE PERFORATION [None]
  - LIVEDO RETICULARIS [None]
  - PERITONEAL LAVAGE [None]
  - PERITONITIS [None]
  - SEPTIC SHOCK [None]
  - VOMITING [None]
